FAERS Safety Report 15166341 (Version 1)
Quarter: 2018Q3

REPORT INFORMATION
  Report Type: Spontaneous
  Country: US (occurrence: US)
  Receive Date: 20180719
  Receipt Date: 20180719
  Transmission Date: 20181010
  Serious: No
  Sender: FDA-Public Use
  Company Number: US-OTSUKA-2018_011794

PATIENT
  Age: 20 Year
  Sex: Male

DRUGS (1)
  1. REXULTI [Suspect]
     Active Substance: BREXPIPRAZOLE
     Indication: PRODUCT USED FOR UNKNOWN INDICATION
     Dosage: 1.5 MG, QD (0.5 MG AND 1 MG)
     Route: 065
     Dates: start: 2018

REACTIONS (3)
  - Therapeutic response unexpected [Unknown]
  - Incorrect dose administered [Unknown]
  - No adverse event [Unknown]
